FAERS Safety Report 6909551-9 (Version None)
Quarter: 2010Q3

REPORT INFORMATION
  Report Type: 
  Country: None (occurrence: None)
  Receive Date: 20100805
  Receipt Date: 20100727
  Transmission Date: 20110219
  Serious: Yes (Hospitalization, Other)
  Sender: FDA-Public Use
  Company Number: US-ABBOTT-10P-163-0660451-00

PATIENT
  Sex: Female
  Weight: 72.64 kg

DRUGS (17)
  1. HUMIRA [Suspect]
     Indication: RHEUMATOID ARTHRITIS
     Route: 058
     Dates: start: 20070101
  2. ASPIRIN [Concomitant]
     Indication: ARTHRALGIA
     Route: 048
     Dates: end: 20100702
  3. ASPIRIN [Concomitant]
     Route: 048
  4. ALPRAZOLAM [Concomitant]
     Indication: ANXIETY
     Route: 048
  5. CALTRATE WITH VITAMIN D [Concomitant]
     Indication: SUPPLEMENTATION THERAPY
     Dosage: 600/450, 2 IN 1 D
     Route: 048
  6. CENTRUM SILVER [Concomitant]
     Indication: SUPPLEMENTATION THERAPY
     Route: 048
  7. COLACE [Concomitant]
     Indication: CONSTIPATION PROPHYLAXIS
     Route: 048
  8. DETROL LA [Concomitant]
     Indication: URINARY INCONTINENCE
     Route: 048
  9. DIGOXIN [Concomitant]
     Indication: ATRIAL FIBRILLATION
     Route: 048
     Dates: start: 20100301
  10. FERROUS SULFATE [Concomitant]
     Indication: ANAEMIA
     Route: 048
  11. FLUOXETINE [Concomitant]
     Indication: ANXIETY
     Route: 048
  12. LIPITOR [Concomitant]
     Indication: PRODUCT USED FOR UNKNOWN INDICATION
     Route: 048
  13. MS CONTIN [Concomitant]
     Indication: ARTHRALGIA
     Route: 048
  14. PANTOPRAZOLE [Concomitant]
     Indication: GASTROOESOPHAGEAL REFLUX DISEASE
     Route: 048
  15. PREDNISONE [Concomitant]
     Indication: PRODUCT USED FOR UNKNOWN INDICATION
     Route: 048
  16. SENNA [Concomitant]
     Indication: DIARRHOEA
     Route: 048
  17. VAGIFEM [Concomitant]
     Indication: VULVOVAGINAL DRYNESS
     Dosage: BIW
     Route: 067

REACTIONS (7)
  - ANAEMIA [None]
  - ARTERIAL OCCLUSIVE DISEASE [None]
  - ATRIAL FIBRILLATION [None]
  - CHEST PAIN [None]
  - DYSPNOEA EXERTIONAL [None]
  - EYE HAEMORRHAGE [None]
  - PROTHROMBIN TIME PROLONGED [None]
